APPROVED DRUG PRODUCT: DEXMEDETOMIDINE HYDROCHLORIDE
Active Ingredient: DEXMEDETOMIDINE HYDROCHLORIDE
Strength: EQ 400MCG BASE/100ML (EQ 4MCG BASE/ML)
Dosage Form/Route: INJECTABLE;INJECTION
Application: A207551 | Product #002 | TE Code: AP
Applicant: AMNEAL PHARMACEUTICALS CO GMBH
Approved: May 20, 2020 | RLD: No | RS: No | Type: RX